FAERS Safety Report 25187689 (Version 1)
Quarter: 2025Q2

REPORT INFORMATION
  Report Type: Spontaneous
  Country: GB (occurrence: GB)
  Receive Date: 20250411
  Receipt Date: 20250411
  Transmission Date: 20250717
  Serious: Yes (Other)
  Sender: ALKEM
  Company Number: None

PATIENT
  Age: 46 Year
  Sex: Female

DRUGS (3)
  1. PREGABALIN [Suspect]
     Active Substance: PREGABALIN
     Indication: Pain in jaw
     Route: 065
     Dates: end: 20250331
  2. PREGABALIN [Suspect]
     Active Substance: PREGABALIN
     Route: 065
  3. NAPROXEN [Concomitant]
     Active Substance: NAPROXEN
     Indication: Pain in jaw
     Route: 065

REACTIONS (1)
  - Lip blister [Recovered/Resolved]

NARRATIVE: CASE EVENT DATE: 20241201
